FAERS Safety Report 7535236-4 (Version None)
Quarter: 2011Q2

REPORT INFORMATION
  Report Type: 
  Country: None (occurrence: None)
  Receive Date: 20110609
  Receipt Date: 20071207
  Transmission Date: 20111010
  Serious: Yes (Disabling)
  Sender: FDA-Public Use
  Company Number: PHFR2007GB03407

PATIENT
  Sex: Female

DRUGS (3)
  1. DEPAKOTE [Concomitant]
     Dosage: 1 G, BID
     Route: 048
     Dates: start: 20071005
  2. CLOZAPINE [Suspect]
     Indication: SCHIZOPHRENIA
     Dosage: 175MG/DAY
     Route: 048
     Dates: start: 20071121
  3. LAMOTRIGINE [Concomitant]
     Dosage: 100MG/DAY
     Route: 048
     Dates: start: 20071030

REACTIONS (5)
  - DISLOCATION OF VERTEBRA [None]
  - BACK PAIN [None]
  - FALL [None]
  - INJURY [None]
  - SPINAL X-RAY [None]
